FAERS Safety Report 11858437 (Version 1)
Quarter: 2015Q4

REPORT INFORMATION
  Report Type: Spontaneous
  Country: US (occurrence: US)
  Receive Date: 20151222
  Receipt Date: 20151222
  Transmission Date: 20160305
  Serious: Yes (Other)
  Sender: FDA-Public Use
  Company Number: US-WATSON-2015-16129

PATIENT
  Age: 39 Year
  Sex: Female

DRUGS (5)
  1. ZONISAMIDE (WATSON LABORATORIES) [Suspect]
     Active Substance: ZONISAMIDE
     Indication: OFF LABEL USE
  2. ZONISAMIDE (WATSON LABORATORIES) [Suspect]
     Active Substance: ZONISAMIDE
     Indication: MIGRAINE PROPHYLAXIS
     Dosage: 25 MG, DAILY
     Route: 065
  3. IMITREX [Concomitant]
     Active Substance: SUMATRIPTAN\SUMATRIPTAN SUCCINATE
     Indication: MIGRAINE PROPHYLAXIS
     Dosage: UNK
     Route: 048
  4. ASTEPRO [Concomitant]
     Active Substance: AZELASTINE HYDROCHLORIDE
     Indication: SINUSITIS
     Dosage: UNK
     Route: 065
  5. QVAR [Concomitant]
     Active Substance: BECLOMETHASONE DIPROPIONATE
     Indication: SINUSITIS
     Dosage: UNK
     Route: 065

REACTIONS (2)
  - Choroidal effusion [Recovered/Resolved]
  - Off label use [Unknown]
